FAERS Safety Report 20156804 (Version 1)
Quarter: 2021Q4

REPORT INFORMATION
  Report Type: Spontaneous
  Country: None (occurrence: FR)
  Receive Date: 20211207
  Receipt Date: 20211207
  Transmission Date: 20220303
  Serious: Yes (Other)
  Sender: FDA-Public Use
  Company Number: FR-B.Braun Medical Inc.-2122761

PATIENT
  Age: 77 Year
  Sex: Male

DRUGS (9)
  1. ACETAMINOPHEN [Suspect]
     Active Substance: ACETAMINOPHEN
  2. BISOPROLOL. [Suspect]
     Active Substance: BISOPROLOL FUMARATE
  3. ALFUZOSIN [Suspect]
     Active Substance: ALFUZOSIN
  4. PERINDOPRIL [Suspect]
     Active Substance: PERINDOPRIL
  5. PANTOPRAZOLE [Suspect]
     Active Substance: PANTOPRAZOLE
  6. MIANSERIN [Suspect]
     Active Substance: MIANSERIN
  7. BROMAZEPAM [Suspect]
     Active Substance: BROMAZEPAM
  8. REPAGLINIDE [Suspect]
     Active Substance: REPAGLINIDE
  9. FUROSEMIDE [Suspect]
     Active Substance: FUROSEMIDE

REACTIONS (8)
  - Hypotension [Recovered/Resolved]
  - Pseudomonas infection [Unknown]
  - Poisoning deliberate [Recovered/Resolved]
  - Acute kidney injury [Recovered/Resolved]
  - Cardiogenic shock [Unknown]
  - Coma [Recovered/Resolved]
  - Pneumonia aspiration [Recovered/Resolved]
  - Bradycardia [Recovered/Resolved]
